FAERS Safety Report 8894230 (Version 1)
Quarter: 2012Q4

REPORT INFORMATION
  Report Type: 
  Country: AU (occurrence: AU)
  Receive Date: 20121108
  Receipt Date: 20121108
  Transmission Date: 20130627
  Serious: Yes (Other)
  Sender: FDA-Public Use
  Company Number: AU-PFIZER INC-2012273508

PATIENT
  Sex: Male

DRUGS (2)
  1. VIAGRA [Suspect]
     Dosage: 100 mg, UNK
  2. EFEXOR XR [Concomitant]
     Indication: ANXIETY

REACTIONS (1)
  - Circulatory collapse [Unknown]
